FAERS Safety Report 6735648-2 (Version None)
Quarter: 2010Q2

REPORT INFORMATION
  Report Type: 
  Country: None (occurrence: None)
  Receive Date: 20100521
  Receipt Date: 20100510
  Transmission Date: 20101027
  Serious: Yes (Hospitalization, Other)
  Sender: FDA-Public Use
  Company Number: PHHY2010FR27271

PATIENT
  Sex: Male
  Weight: 102 kg

DRUGS (2)
  1. RASILEZ [Suspect]
     Indication: HYPERTENSION
     Dosage: 300 MG FOR 3 WEEKS
     Dates: start: 20091101, end: 20100201
  2. EZETIMIBE/SIMVASTATIN [Concomitant]
     Indication: HYPERCHOLESTEROLAEMIA
     Dosage: 1 DF DAILY
     Dates: start: 20100201

REACTIONS (9)
  - AMNESIA [None]
  - CONFUSIONAL STATE [None]
  - CONVULSION [None]
  - EPILEPSY [None]
  - HYPERTENSION [None]
  - HYPOTONIA [None]
  - INCONTINENCE [None]
  - LOSS OF CONSCIOUSNESS [None]
  - TONGUE BITING [None]
